FAERS Safety Report 15814638 (Version 1)
Quarter: 2019Q1

REPORT INFORMATION
  Report Type: Report from Study
  Country: None (occurrence: US)
  Receive Date: 20190111
  Receipt Date: 20190111
  Transmission Date: 20190417
  Serious: Yes (Death)
  Sender: FDA-Public Use
  Company Number: US-US WORLDMEDS, LLC-USW201901-000003

PATIENT
  Age: 60 Year
  Sex: Female
  Weight: 54.43 kg

DRUGS (14)
  1. WELLBUTRIN [Concomitant]
     Active Substance: BUPROPION HYDROCHLORIDE
  2. TIZANIDINE. [Concomitant]
     Active Substance: TIZANIDINE
  3. APOKYN [Suspect]
     Active Substance: APOMORPHINE HYDROCHLORIDE
     Route: 058
     Dates: start: 20180908
  4. APOKYN [Suspect]
     Active Substance: APOMORPHINE HYDROCHLORIDE
     Route: 058
  5. LEVODOPA [Concomitant]
     Active Substance: LEVODOPA
  6. CLONAZEPAM. [Concomitant]
     Active Substance: CLONAZEPAM
  7. BENAZEPRIL [Concomitant]
     Active Substance: BENAZEPRIL HYDROCHLORIDE
  8. RANITIDINE. [Concomitant]
     Active Substance: RANITIDINE
  9. HYDROCODONE [Concomitant]
     Active Substance: HYDROCODONE
  10. APOKYN [Suspect]
     Active Substance: APOMORPHINE HYDROCHLORIDE
     Indication: PARKINSON^S DISEASE
     Route: 058
     Dates: start: 20180925
  11. ENTACAPONE. [Concomitant]
     Active Substance: ENTACAPONE
  12. GABAPENTIN. [Concomitant]
     Active Substance: GABAPENTIN
  13. TRAMADOL. [Concomitant]
     Active Substance: TRAMADOL
  14. DICLOFENAC [Concomitant]
     Active Substance: DICLOFENAC

REACTIONS (4)
  - Asthenia [Unknown]
  - Muscle spasms [Unknown]
  - Death [Fatal]
  - Constipation [Unknown]

NARRATIVE: CASE EVENT DATE: 20181225
